FAERS Safety Report 15204478 (Version 1)
Quarter: 2018Q3

REPORT INFORMATION
  Report Type: Spontaneous
  Country: US (occurrence: US)
  Receive Date: 20180726
  Receipt Date: 20180726
  Transmission Date: 20181010
  Serious: No
  Sender: FDA-Public Use
  Company Number: US-BEH-2018093073

PATIENT
  Age: 77 Year
  Sex: Female
  Weight: 98.41 kg

DRUGS (24)
  1. DIPHENHYDRAMINE. [Concomitant]
     Active Substance: DIPHENHYDRAMINE
  2. ROPINIROLE. [Concomitant]
     Active Substance: ROPINIROLE
  3. MONTELUKAST [Concomitant]
     Active Substance: MONTELUKAST SODIUM
  4. METOPROLOL. [Concomitant]
     Active Substance: METOPROLOL
  5. EPINEPHRINE. [Concomitant]
     Active Substance: EPINEPHRINE
  6. IPRATROPIUM/ALBUTEROL [Concomitant]
     Active Substance: ALBUTEROL\IPRATROPIUM
  7. HIZENTRA [Suspect]
     Active Substance: HUMAN IMMUNOGLOBULIN G
     Dosage: UNK
     Route: 058
  8. ADVAIR HFA [Concomitant]
     Active Substance: FLUTICASONE PROPIONATE\SALMETEROL XINAFOATE
  9. RESTORIL [Concomitant]
     Active Substance: TEMAZEPAM
  10. LOSARTAN AND HYDROCHLOROTHIAZIDE [Concomitant]
     Active Substance: HYDROCHLOROTHIAZIDE\LOSARTAN POTASSIUM
  11. PROAIR HFA [Concomitant]
     Active Substance: ALBUTEROL SULFATE
  12. HIZENTRA [Suspect]
     Active Substance: HUMAN IMMUNOGLOBULIN G
     Indication: IMMUNODEFICIENCY COMMON VARIABLE
     Dosage: 11 G, QW
     Route: 058
     Dates: start: 20161208
  13. METHYLDOPA. [Concomitant]
     Active Substance: METHYLDOPA
  14. PRAVASTATIN. [Concomitant]
     Active Substance: PRAVASTATIN
  15. GABAPENTIN. [Concomitant]
     Active Substance: GABAPENTIN
  16. UMECLIDINIUM BROMIDE [Concomitant]
     Active Substance: UMECLIDINIUM BROMIDE
  17. MUCINEX DM [Concomitant]
     Active Substance: DEXTROMETHORPHAN HYDROBROMIDE\GUAIFENESIN
  18. HIZENTRA [Suspect]
     Active Substance: HUMAN IMMUNOGLOBULIN G
     Dosage: UNK
     Route: 058
  19. LIDOCAINE. [Concomitant]
     Active Substance: LIDOCAINE
  20. FUROSEMIDE. [Concomitant]
     Active Substance: FUROSEMIDE
  21. VENLAFAXINE [Concomitant]
     Active Substance: VENLAFAXINE HYDROCHLORIDE
  22. ACETAMINOPHEN. [Concomitant]
     Active Substance: ACETAMINOPHEN
  23. SINEMET [Concomitant]
     Active Substance: CARBIDOPA\LEVODOPA
  24. ANOROL [Concomitant]

REACTIONS (2)
  - Rash [Unknown]
  - Urticaria [Unknown]

NARRATIVE: CASE EVENT DATE: 20180715
